FAERS Safety Report 7756006-8 (Version None)
Quarter: 2011Q3

REPORT INFORMATION
  Report Type: 
  Country: None (occurrence: None)
  Receive Date: 20110916
  Receipt Date: 20110909
  Transmission Date: 20111222
  Serious: Yes (Hospitalization, Other)
  Sender: FDA-Public Use
  Company Number: DK-PFIZER INC-2011213306

PATIENT

DRUGS (13)
  1. PREDNISONE [Suspect]
     Dosage: UNK
     Dates: start: 20080115
  2. CYCLOPHOSPHAMIDE [Suspect]
     Dosage: UNK
     Dates: start: 20050110
  3. VINCRISTINE [Suspect]
     Indication: B-CELL LYMPHOMA RECURRENT
     Dates: start: 20060901
  4. YTRACIS [Suspect]
     Indication: B-CELL LYMPHOMA RECURRENT
     Dates: start: 20060901, end: 20060901
  5. ZEVALIN [Suspect]
     Indication: B-CELL LYMPHOMA RECURRENT
     Dates: start: 20060901, end: 20060901
  6. ZEVALIN [Suspect]
     Dosage: UNK
     Dates: start: 20060215
  7. RITUXIMAB [Suspect]
     Indication: B-CELL LYMPHOMA RECURRENT
     Dates: start: 20060901
  8. DOXORUBICIN HCL [Suspect]
     Dates: start: 20060901
  9. CYCLOPHOSPHAMIDE [Suspect]
     Indication: B-CELL LYMPHOMA RECURRENT
     Dates: start: 20060901
  10. RITUXIMAB [Suspect]
     Dosage: UNK
     Dates: start: 20050110
  11. RITUXIMAB [Suspect]
     Dosage: UNK
     Dates: start: 20060215
  12. PREDNISONE [Suspect]
     Indication: B-CELL LYMPHOMA RECURRENT
     Dates: start: 20060901
  13. RITUXIMAB [Suspect]
     Dosage: UNK
     Dates: start: 20080115

REACTIONS (2)
  - ALLOGENIC BONE MARROW TRANSPLANTATION THERAPY [None]
  - MYELODYSPLASTIC SYNDROME [None]
